FAERS Safety Report 6055808-6 (Version None)
Quarter: 2009Q1

REPORT INFORMATION
  Report Type: 
  Country: None (occurrence: None)
  Receive Date: 20090126
  Receipt Date: 20090121
  Transmission Date: 20090719
  Serious: Yes (Death)
  Sender: FDA-Public Use
  Company Number: 2008JP005858

PATIENT
  Age: 49 Year
  Sex: Female

DRUGS (5)
  1. PROGRAF [Suspect]
     Indication: BONE MARROW TRANSPLANT
  2. METHOTREXATE [Concomitant]
  3. INSULIN (INSULIN) [Concomitant]
  4. FOSCARNET [Concomitant]
  5. HYPERALIMENTATION PREPARATIONS INJECTION [Concomitant]

REACTIONS (4)
  - HEPATIC FAILURE [None]
  - IMPAIRED INSULIN SECRETION [None]
  - PNEUMONIA CYTOMEGALOVIRAL [None]
  - THIRST [None]
